APPROVED DRUG PRODUCT: CHILDREN'S CETIRIZINE HYDROCHLORIDE HIVES RELIEF
Active Ingredient: CETIRIZINE HYDROCHLORIDE
Strength: 5MG/5ML
Dosage Form/Route: SOLUTION;ORAL
Application: A090572 | Product #002
Applicant: TRIS PHARMA INC
Approved: Nov 16, 2012 | RLD: No | RS: No | Type: DISCN